FAERS Safety Report 17053622 (Version 2)
Quarter: 2020Q1

REPORT INFORMATION
  Report Type: Report from Study
  Country: JP (occurrence: JP)
  Receive Date: 20191120
  Receipt Date: 20200108
  Transmission Date: 20200409
  Serious: Yes (Hospitalization, Other)
  Sender: FDA-Public Use
  Company Number: JP-INCYTE CORPORATION-2019IN011601

PATIENT

DRUGS (8)
  1. VFEND [Concomitant]
     Active Substance: VORICONAZOLE
     Dosage: 400 MG, UNK
     Route: 048
     Dates: start: 20161215
  2. PRODIF [Concomitant]
     Active Substance: FOSFLUCONAZOLE
     Indication: BONE MARROW FAILURE
     Dosage: 400 MG, UNK
     Route: 065
     Dates: start: 20161118, end: 20161121
  3. RED BLOOD CELLS, CONCENTRATED [Concomitant]
     Active Substance: HUMAN RED BLOOD CELL
     Indication: ANAEMIA
  4. RED BLOOD CELLS, CONCENTRATED [Concomitant]
     Active Substance: HUMAN RED BLOOD CELL
     Indication: PRIMARY MYELOFIBROSIS
     Dosage: 2 U, UNK
     Route: 041
     Dates: start: 20160708, end: 20170110
  5. JAKAVI [Suspect]
     Active Substance: RUXOLITINIB
     Indication: PRIMARY MYELOFIBROSIS
     Dosage: 5 MG, BID
     Route: 048
     Dates: start: 20160513, end: 20161115
  6. JAKAVI [Suspect]
     Active Substance: RUXOLITINIB
     Dosage: 5 MG, QD
     Route: 048
     Dates: start: 20161116, end: 20170111
  7. FLUCONAZOLE. [Concomitant]
     Active Substance: FLUCONAZOLE
     Indication: BONE MARROW FAILURE
     Dosage: 200 MG, UNK
     Route: 048
     Dates: start: 20161122, end: 20161213
  8. VFEND [Concomitant]
     Active Substance: VORICONAZOLE
     Indication: BONE MARROW FAILURE
     Dosage: 600 MG, UNK
     Route: 048
     Dates: start: 20161214, end: 20161214

REACTIONS (4)
  - Cryptococcosis [Not Recovered/Not Resolved]
  - Anaemia [Recovering/Resolving]
  - Primary myelofibrosis [Not Recovered/Not Resolved]
  - Vomiting [Recovered/Resolved]

NARRATIVE: CASE EVENT DATE: 20160708
